FAERS Safety Report 5023809-2 (Version None)
Quarter: 2006Q2

REPORT INFORMATION
  Report Type: 
  Country: None (occurrence: None)
  Receive Date: 20060606
  Receipt Date: 20060522
  Transmission Date: 20061013
  Serious: Yes (Hospitalization, Other)
  Sender: FDA-Public Use
  Company Number: CHWYE642722MAY06

PATIENT
  Age: 29 Year
  Sex: Male

DRUGS (11)
  1. EFFEXOR [Suspect]
     Dosage: SEE IMAGE
     Route: 048
     Dates: start: 20060203, end: 20060205
  2. EFFEXOR [Suspect]
     Dosage: SEE IMAGE
     Route: 048
     Dates: start: 20060206, end: 20060209
  3. EFFEXOR [Suspect]
     Dosage: SEE IMAGE
     Route: 048
     Dates: start: 20060210, end: 20060214
  4. EFFEXOR [Suspect]
     Dosage: SEE IMAGE
     Route: 048
     Dates: start: 20060215, end: 20060302
  5. EFFEXOR [Suspect]
     Dosage: SEE IMAGE
     Route: 048
     Dates: start: 20060303, end: 20060308
  6. EFFEXOR [Suspect]
     Dosage: SEE IMAGE
     Route: 048
     Dates: start: 20060309, end: 20060312
  7. EFFEXOR [Suspect]
     Dosage: SEE IMAGE
     Route: 048
     Dates: start: 20060313, end: 20060314
  8. SEROQUEL [Suspect]
     Dosage: SEE IMAGE
     Route: 048
     Dates: start: 20060306, end: 20060306
  9. SEROQUEL [Suspect]
     Dosage: SEE IMAGE
     Route: 048
     Dates: start: 20060307, end: 20060316
  10. SEROQUEL [Suspect]
     Dosage: SEE IMAGE
     Route: 048
     Dates: start: 20060317, end: 20060402
  11. SEROQUEL [Suspect]
     Dosage: SEE IMAGE
     Route: 048
     Dates: start: 20060403

REACTIONS (2)
  - CIRCULATORY COLLAPSE [None]
  - DRUG INTERACTION [None]
